FAERS Safety Report 13693438 (Version 1)
Quarter: 2017Q2

REPORT INFORMATION
  Report Type: Spontaneous
  Country: US (occurrence: US)
  Receive Date: 20170626
  Receipt Date: 20170626
  Transmission Date: 20170830
  Serious: No
  Sender: FDA-Public Use
  Company Number: None

PATIENT
  Age: 53 Year
  Sex: Female
  Weight: 78.75 kg

DRUGS (7)
  1. TIZANIDINE. [Concomitant]
     Active Substance: TIZANIDINE
  2. FISH OIL [Concomitant]
     Active Substance: FISH OIL
  3. IC IBUPROFEN 800 MG TABLET [Suspect]
     Active Substance: IBUPROFEN
     Indication: OSTEOARTHRITIS
     Dosage: ?          OTHER STRENGTH:MG;QUANTITY:54 TABLET(S);?
     Route: 048
     Dates: start: 20151130, end: 20160801
  4. MULTIVITAMIN [Concomitant]
     Active Substance: VITAMINS
  5. VITAMIN D [Concomitant]
     Active Substance: CHOLECALCIFEROL
  6. VITAMIN A [Concomitant]
     Active Substance: VITAMIN A
  7. IC IBUPROFEN 800 MG TABLET [Suspect]
     Active Substance: IBUPROFEN
     Indication: PAIN
     Dosage: ?          OTHER STRENGTH:MG;QUANTITY:54 TABLET(S);?
     Route: 048
     Dates: start: 20151130, end: 20160801

REACTIONS (3)
  - Drug ineffective [None]
  - Poor quality drug administered [None]
  - Product quality issue [None]

NARRATIVE: CASE EVENT DATE: 20160708
